FAERS Safety Report 9839470 (Version 4)
Quarter: 2014Q2

REPORT INFORMATION
  Report Type: Spontaneous
  Country: US (occurrence: US)
  Receive Date: 20140124
  Receipt Date: 20140616
  Transmission Date: 20141212
  Serious: Yes (Other)
  Sender: FDA-Public Use
  Company Number: US-AMGEN-USASP2014004325

PATIENT
  Age: 56 Year
  Sex: Male
  Weight: 109.75 kg

DRUGS (6)
  1. ENBREL [Suspect]
     Indication: RHEUMATOID ARTHRITIS
     Dosage: 50 MG, QWK
     Route: 058
     Dates: start: 20050401
  2. ENBREL [Suspect]
     Dosage: UNK
     Route: 065
  3. PRINIVIL [Concomitant]
     Dosage: 10 MG, UNK
     Route: 048
  4. ZANAFLEX [Concomitant]
     Dosage: 2 MG, UNK
     Route: 048
  5. LOPID [Concomitant]
     Dosage: 600 MG, UNK
  6. AZATHIOPRINE [Concomitant]
     Indication: RHEUMATOID ARTHRITIS
     Dosage: 100 MG, QD
     Route: 048

REACTIONS (7)
  - Prostate cancer [Not Recovered/Not Resolved]
  - Pain in extremity [Not Recovered/Not Resolved]
  - Arthralgia [Recovered/Resolved]
  - Joint swelling [Not Recovered/Not Resolved]
  - Dizziness [Recovered/Resolved]
  - Pruritus [Not Recovered/Not Resolved]
  - Dyspnoea exertional [Not Recovered/Not Resolved]
